FAERS Safety Report 13270608 (Version 1)
Quarter: 2017Q1

REPORT INFORMATION
  Report Type: Report from Study
  Country: US (occurrence: US)
  Receive Date: 20170224
  Receipt Date: 20170224
  Transmission Date: 20170428
  Serious: Yes (Death, Hospitalization, Other)
  Sender: FDA-Public Use
  Company Number: US-009507513-1702USA003567

PATIENT
  Age: 55 Year
  Sex: Female

DRUGS (1)
  1. KEYTRUDA [Suspect]
     Active Substance: PEMBROLIZUMAB
     Indication: NON-SMALL CELL LUNG CANCER
     Dosage: UNK, ONCE
     Dates: start: 20161028

REACTIONS (11)
  - Chest pain [Unknown]
  - Malignant neoplasm progression [Unknown]
  - Staphylococcal infection [Unknown]
  - Mental status changes [Unknown]
  - Anaemia [Unknown]
  - Failure to thrive [Unknown]
  - Pyrexia [Unknown]
  - Herpes zoster [Unknown]
  - Death [Fatal]
  - Disseminated intravascular coagulation [Unknown]
  - Thrombocytopenia [Unknown]

NARRATIVE: CASE EVENT DATE: 2016
